FAERS Safety Report 6554423-5 (Version None)
Quarter: 2010Q1

REPORT INFORMATION
  Report Type: 
  Country: None (occurrence: None)
  Receive Date: 20100127
  Receipt Date: 20100120
  Transmission Date: 20100710
  Serious: Yes (Hospitalization)
  Sender: FDA-Public Use
  Company Number: GXKR2010JP00993

PATIENT
  Age: 82 Year
  Sex: Male

DRUGS (4)
  1. OXALIPLATIN [Interacting]
     Indication: COLON CANCER METASTATIC
     Dosage: 85 MG/M2, DAY 1, BIWEEKLY REGIMEN, 10 CYCLES
     Route: 065
  2. FLUOROURACIL [Suspect]
     Indication: COLON CANCER METASTATIC
     Dosage: 400 MG/M2  BOLUS (2 CONSECUTIVE DAYS)
     Route: 065
  3. FLUOROURACIL [Interacting]
     Dosage: 600 MG/M2, FOR 22 HOURS (2 CONSECUTIVE DAYS)
  4. FOLINIC ACID (NGX) [Interacting]
     Indication: COLON CANCER METASTATIC
     Dosage: 100 MG/M2, (2 CONSECUTIVE DAYS)
     Route: 065

REACTIONS (3)
  - COUGH [None]
  - DYSPNOEA [None]
  - INTERSTITIAL LUNG DISEASE [None]
